FAERS Safety Report 25065951 (Version 1)
Quarter: 2025Q1

REPORT INFORMATION
  Report Type: Report from Study
  Country: MX (occurrence: MX)
  Receive Date: 20250312
  Receipt Date: 20250312
  Transmission Date: 20250408
  Serious: Yes (Other)
  Sender: NOVARTIS
  Company Number: MX-002147023-NVSC2025MX039721

PATIENT
  Age: 60 Year
  Sex: Female
  Weight: 50 kg

DRUGS (2)
  1. VOTRIENT [Suspect]
     Active Substance: PAZOPANIB HYDROCHLORIDE
     Indication: Lung neoplasm malignant
     Dosage: 2 DF (400 MG), QD
     Route: 048
     Dates: start: 202501
  2. VOTRIENT [Suspect]
     Active Substance: PAZOPANIB HYDROCHLORIDE
     Dosage: 1 DF, QD
     Route: 065
     Dates: end: 20250212

REACTIONS (7)
  - Hepatitis [Unknown]
  - Vomiting [Unknown]
  - Inflammation [Unknown]
  - Dizziness [Unknown]
  - Urticaria [Unknown]
  - Off label use [Unknown]
  - Feeding disorder [Unknown]

NARRATIVE: CASE EVENT DATE: 20250101
